FAERS Safety Report 16662626 (Version 2)
Quarter: 2020Q1

REPORT INFORMATION
  Report Type: Report from Study
  Country: US (occurrence: US)
  Receive Date: 20190802
  Receipt Date: 20200129
  Transmission Date: 20200409
  Serious: No
  Sender: FDA-Public Use
  Company Number: US-EXELIXIS-CABO-19019378

PATIENT
  Sex: Male

DRUGS (3)
  1. CABOMETYX [Suspect]
     Active Substance: CABOZANTINIB S-MALATE
     Indication: RENAL CANCER
     Dosage: 60 MG, QD
     Route: 048
     Dates: start: 20180524, end: 2018
  2. CABOMETYX [Suspect]
     Active Substance: CABOZANTINIB S-MALATE
     Dosage: 40 MG, QD
     Route: 048
     Dates: start: 2018
  3. CABOMETYX [Suspect]
     Active Substance: CABOZANTINIB S-MALATE
     Dosage: 40 AND 60 MG EVERY OTHER DAY WITHOUT FOOD
     Route: 048

REACTIONS (18)
  - Skin discolouration [Unknown]
  - Glomerular filtration rate decreased [Unknown]
  - Aortic arteriosclerosis [Unknown]
  - Intervertebral disc degeneration [Unknown]
  - Hepatic steatosis [Unknown]
  - Palmar-plantar erythrodysaesthesia syndrome [Unknown]
  - Carbon dioxide decreased [Unknown]
  - Spinal osteoarthritis [Unknown]
  - Mean cell volume increased [Unknown]
  - Mean cell haemoglobin increased [Unknown]
  - Blood creatinine increased [Unknown]
  - Alanine aminotransferase increased [Unknown]
  - Pallor [Unknown]
  - Red blood cell count decreased [Unknown]
  - Haematocrit decreased [Unknown]
  - Blood chloride increased [Unknown]
  - Haemoglobin decreased [Unknown]
  - Blood pressure increased [Unknown]
